FAERS Safety Report 15805648 (Version 1)
Quarter: 2019Q1

REPORT INFORMATION
  Report Type: Spontaneous
  Country: US (occurrence: US)
  Receive Date: 20190110
  Receipt Date: 20190110
  Transmission Date: 20190417
  Serious: No
  Sender: FDA-Public Use
  Company Number: US-DRREDDYS-USA/USA/18/0097665

PATIENT
  Age: 65 Year
  Sex: Female
  Weight: 66.81 kg

DRUGS (1)
  1. IBUPROFEN. [Suspect]
     Active Substance: IBUPROFEN
     Indication: NERVE COMPRESSION
     Dosage: 1 TABLET TWICE TO THREE TIMES DAILY
     Route: 065
     Dates: end: 20180402

REACTIONS (1)
  - Alopecia [Unknown]
